FAERS Safety Report 7947179-2 (Version None)
Quarter: 2011Q4

REPORT INFORMATION
  Report Type: 
  Country: None (occurrence: None)
  Receive Date: 20111129
  Receipt Date: 20111123
  Transmission Date: 20120403
  Serious: Yes (Hospitalization)
  Sender: FDA-Public Use
  Company Number: BE-B.I. PHARMACEUTICALS,INC./RIDGEFIELD-2011-BL-00239BL

PATIENT
  Sex: Male
  Weight: 90 kg

DRUGS (4)
  1. PRADAXA [Suspect]
     Indication: ATRIAL FIBRILLATION
     Dosage: 220 MG
     Route: 048
     Dates: start: 20110329, end: 20111101
  2. TAMBOCOR [Concomitant]
     Dosage: 200 MG
     Route: 048
     Dates: start: 20101101
  3. ISOTEN [Concomitant]
     Dosage: 5 MG
     Route: 048
     Dates: start: 20100101
  4. ZOCOR [Concomitant]
     Dosage: 40 MG
     Route: 048

REACTIONS (2)
  - COLITIS ISCHAEMIC [None]
  - GASTROINTESTINAL HAEMORRHAGE [None]
